FAERS Safety Report 26185217 (Version 1)
Quarter: 2025Q4

REPORT INFORMATION
  Report Type: Report from Study
  Country: US (occurrence: US)
  Receive Date: 20251222
  Receipt Date: 20251222
  Transmission Date: 20260117
  Serious: Yes (Other)
  Sender: ALEXION PHARMACEUTICALS
  Company Number: 202506USA007335US

PATIENT
  Sex: Male

DRUGS (2)
  1. BENRALIZUMAB [Suspect]
     Active Substance: BENRALIZUMAB
     Indication: Asthma
     Dosage: 30 MILLIGRAM, QMONTH
     Dates: start: 202503
  2. BENRALIZUMAB [Suspect]
     Active Substance: BENRALIZUMAB

REACTIONS (14)
  - Cough [Unknown]
  - Asthma [Unknown]
  - Dyskinesia [Unknown]
  - Device use issue [Unknown]
  - Social problem [Unknown]
  - Exercise lack of [Unknown]
  - Asthma [Unknown]
  - Meniere^s disease [Not Recovered/Not Resolved]
  - Headache [Not Recovered/Not Resolved]
  - Dizziness [Not Recovered/Not Resolved]
  - Amnesia [Unknown]
  - Confusional state [Unknown]
  - Arthralgia [Unknown]
  - Nodule [Unknown]
